FAERS Safety Report 20632032 (Version 2)
Quarter: 2022Q3

REPORT INFORMATION
  Report Type: Spontaneous
  Country: US (occurrence: US)
  Receive Date: 20220324
  Receipt Date: 20220912
  Transmission Date: 20221027
  Serious: No
  Sender: FDA-Public Use
  Company Number: US-BIOGEN-2022BI01107845

PATIENT
  Sex: Female

DRUGS (8)
  1. VUMERITY [Suspect]
     Active Substance: DIROXIMEL FUMARATE
     Indication: Multiple sclerosis
     Dosage: TAKE 2 CAPSULES (462 MG) BY MOUTH 2 TIMES A DAY
     Route: 050
     Dates: start: 20220311
  2. VUMERITY [Suspect]
     Active Substance: DIROXIMEL FUMARATE
     Dosage: TAKE 2 CAPSULES (462 MG) BY MOUTH 2 TIMES A DAY
     Route: 050
     Dates: start: 20220228
  3. GABAPENTIN [Concomitant]
     Active Substance: GABAPENTIN
     Route: 050
  4. MYRBETRIQ [Concomitant]
     Active Substance: MIRABEGRON
     Route: 050
  5. Trazodone HC [Concomitant]
     Route: 050
  6. ZINC [Concomitant]
     Active Substance: ZINC
     Route: 050
  7. HYDROXYCHLOROQUINE [Concomitant]
     Active Substance: HYDROXYCHLOROQUINE
     Route: 050
  8. PREDNISONE [Concomitant]
     Active Substance: PREDNISONE
     Route: 050

REACTIONS (4)
  - Constipation [Not Recovered/Not Resolved]
  - Flushing [Not Recovered/Not Resolved]
  - Diarrhoea [Not Recovered/Not Resolved]
  - Rash [Not Recovered/Not Resolved]
